FAERS Safety Report 24587900 (Version 1)
Quarter: 2024Q4

REPORT INFORMATION
  Report Type: Report from Study
  Country: US (occurrence: US)
  Receive Date: 20241107
  Receipt Date: 20241107
  Transmission Date: 20250114
  Serious: Yes (Death, Other)
  Sender: RANBAXY
  Company Number: US-SUN PHARMACEUTICAL INDUSTRIES LTD-2024R1-477840

PATIENT
  Age: 74 Year
  Sex: Female

DRUGS (1)
  1. CODEINE [Suspect]
     Active Substance: CODEINE
     Indication: Product used for unknown indication
     Dosage: UNK
     Route: 065

REACTIONS (7)
  - Bradypnoea [Fatal]
  - Cardiac arrest [Fatal]
  - Depressed level of consciousness [Fatal]
  - Hypotension [Fatal]
  - Metabolic acidosis [Fatal]
  - Respiratory depression [Fatal]
  - Toxicity to various agents [Fatal]
